FAERS Safety Report 6520246-6 (Version None)
Quarter: 2009Q4

REPORT INFORMATION
  Report Type: 
  Country: None (occurrence: None)
  Receive Date: 20091229
  Receipt Date: 20091218
  Transmission Date: 20100525
  Serious: Yes (Other)
  Sender: FDA-Public Use
  Company Number: PHEH2009US18105

PATIENT
  Sex: Male

DRUGS (2)
  1. NEORAL [Suspect]
     Dosage: 125 MG, BID
     Route: 048
     Dates: start: 20091002
  2. VICODIN [Concomitant]
     Dosage: UNK

REACTIONS (2)
  - SHOULDER OPERATION [None]
  - UPPER LIMB FRACTURE [None]
